FAERS Safety Report 10186606 (Version 2)
Quarter: 2014Q2

REPORT INFORMATION
  Report Type: Spontaneous
  Country: US (occurrence: US)
  Receive Date: 20140521
  Receipt Date: 20140528
  Transmission Date: 20141212
  Serious: Yes (Death, Hospitalization)
  Sender: FDA-Public Use
  Company Number: US-BAXTER-2014BAX025480

PATIENT
  Age: 33 Year
  Sex: Male
  Weight: 58 kg

DRUGS (1)
  1. 0.9% SODIUM CHLORIDE IRRIGATION, USP [Suspect]
     Indication: DEVICE PRIMING
     Route: 065
     Dates: end: 20140318

REACTIONS (6)
  - Sepsis [Fatal]
  - Pneumonia [Fatal]
  - Hypertension [Unknown]
  - Heart rate decreased [Unknown]
  - Skin discolouration [Unknown]
  - Heart rate irregular [Unknown]
